FAERS Safety Report 7201389-0 (Version None)
Quarter: 2010Q4

REPORT INFORMATION
  Report Type: 
  Country: None (occurrence: None)
  Receive Date: 20101227
  Receipt Date: 20101227
  Transmission Date: 20110411
  Serious: Yes (Life-Threatening, Hospitalization, Disabling, Other)
  Sender: FDA-Public Use
  Company Number: None

PATIENT
  Age: 30 Month
  Sex: Male
  Weight: 79.3795 kg

DRUGS (2)
  1. PROTROPIN [Suspect]
     Indication: BODY HEIGHT BELOW NORMAL
     Dosage: DAILY SQ
     Route: 058
     Dates: start: 19880715, end: 19980519
  2. NUTROPIN [Suspect]
     Indication: BODY HEIGHT BELOW NORMAL
     Dosage: DAILY SQ
     Route: 058
     Dates: start: 19980520, end: 20051118

REACTIONS (3)
  - ARNOLD-CHIARI MALFORMATION [None]
  - BENIGN INTRACRANIAL HYPERTENSION [None]
  - TREATMENT FAILURE [None]
